FAERS Safety Report 26176821 (Version 1)
Quarter: 2025Q4

REPORT INFORMATION
  Report Type: Spontaneous
  Country: US (occurrence: US)
  Receive Date: 20251218
  Receipt Date: 20251218
  Transmission Date: 20260118
  Serious: No
  Sender: AMGEN
  Company Number: US-AMGEN-USASP2025249135

PATIENT
  Age: 84 Year
  Sex: Female

DRUGS (8)
  1. REPATHA [Suspect]
     Active Substance: EVOLOCUMAB
     Indication: Arterial disorder
     Dosage: 140 MILLIGRAM, Q2WK
     Route: 058
  2. VITAMIN D3 [Concomitant]
     Active Substance: CHOLECALCIFEROL
     Indication: Vitamin D deficiency
     Dosage: UNK, 2X A DAY  (1 MONTH AGO)
     Dates: start: 202511
  3. LEVOTHYROXINE [Concomitant]
     Active Substance: LEVOTHYROXINE
     Indication: Thyroid disorder
     Dosage: 100 MILLIGRAM, QD (1 TIME A DAY IN THE MORNING)
     Dates: start: 1985
  4. CARVEDILOL [Concomitant]
     Active Substance: CARVEDILOL
     Indication: Blood pressure abnormal
     Dosage: 12.5 MILLIGRAM, 2 TIMES A DAY 6.25 1 TIME A DAY (YEARS AGO )
  5. CLONIDINE [Concomitant]
     Active Substance: CLONIDINE
     Indication: Blood pressure abnormal
     Dosage: 0.2 MILLIGRAM,  NIGHT ONE TIME BEFORE BED (YEARS AGO )
  6. IRON [Concomitant]
     Active Substance: IRON
     Indication: Full blood count decreased
     Dosage: 65 MILLIGRAM, QD
     Dates: start: 202509
  7. FUROSEMIDE [Concomitant]
     Active Substance: FUROSEMIDE
     Indication: Cardiac disorder
     Dosage: 20 MILLIGRAM, 1/2 CAPSULE 1 TIME A DAY IN THE MORNING ( A WHILE, BEFORE REPATHA)
  8. PANTOPRAZOLE [Concomitant]
     Active Substance: PANTOPRAZOLE
     Indication: Ulcer
     Dosage: 40 MILLIGRAM, TWICE A DAY
     Dates: start: 2023

REACTIONS (4)
  - Injection site pain [Unknown]
  - Product administration error [Unknown]
  - Accidental exposure to product [Unknown]
  - Wrong technique in product usage process [Unknown]

NARRATIVE: CASE EVENT DATE: 20251215
